FAERS Safety Report 4436475-1 (Version None)
Quarter: 2004Q3

REPORT INFORMATION
  Report Type: 
  Country: None (occurrence: None)
  Receive Date: 20040830
  Receipt Date: 20040525
  Transmission Date: 20050211
  Serious: No
  Sender: FDA-Public Use
  Company Number: US-BRISTOL-MYERS SQUIBB COMPANY-12595914

PATIENT
  Age: 14 Year
  Sex: Male
  Weight: 68 kg

DRUGS (4)
  1. ABILIFY [Suspect]
     Indication: PERVASIVE DEVELOPMENTAL DISORDER
     Dosage: INITIATED AT 10 MG/DAY; DECREASED TO 7.5 MG/DAY; DECREASED TO 5 MG/DAY.
     Route: 048
  2. COLACE [Concomitant]
  3. ADDERALL 10 [Concomitant]
  4. BENEFIBER [Concomitant]

REACTIONS (2)
  - RASH MACULO-PAPULAR [None]
  - SEDATION [None]
